FAERS Safety Report 9869930 (Version 1)
Quarter: 2014Q1

REPORT INFORMATION
  Report Type: Spontaneous
  Country: GB (occurrence: GB)
  Receive Date: 20140205
  Receipt Date: 20140205
  Transmission Date: 20141002
  Serious: Yes (Death)
  Sender: FDA-Public Use
  Company Number: GB-ROCHE-1343536

PATIENT
  Sex: Male

DRUGS (1)
  1. ROACTEMRA [Suspect]
     Indication: PRODUCT USED FOR UNKNOWN INDICATION
     Route: 065
     Dates: start: 20131209, end: 20131209

REACTIONS (2)
  - Interstitial lung disease [Fatal]
  - Pneumonia [Fatal]
